FAERS Safety Report 16077350 (Version 1)
Quarter: 2019Q1

REPORT INFORMATION
  Report Type: Spontaneous
  Country: AR (occurrence: AR)
  Receive Date: 20190315
  Receipt Date: 20190315
  Transmission Date: 20190418
  Serious: Yes (Other)
  Sender: FDA-Public Use
  Company Number: AR-TEVA-2019-AR-1026674

PATIENT
  Age: 9 Decade
  Sex: Female

DRUGS (3)
  1. ENALAPRIL [Concomitant]
     Active Substance: ENALAPRIL
  2. MEMANTINA TEVA [Suspect]
     Active Substance: MEMANTINE
     Route: 048
     Dates: start: 201812
  3. FUROSEMIDE. [Concomitant]
     Active Substance: FUROSEMIDE

REACTIONS (4)
  - Product substitution issue [Unknown]
  - Cerebrovascular accident [Recovered/Resolved]
  - Arrhythmia [Unknown]
  - Hypertension [Unknown]
